FAERS Safety Report 17211390 (Version 1)
Quarter: 2019Q4

REPORT INFORMATION
  Report Type: Report from Study
  Country: None (occurrence: IE)
  Receive Date: 20191228
  Receipt Date: 20191228
  Transmission Date: 20200122
  Serious: Yes (Hospitalization)
  Sender: FDA-Public Use
  Company Number: IE-ABBVIE-19K-229-3213571-00

PATIENT
  Age: 4 Month
  Sex: Female

DRUGS (2)
  1. SYNAGIS [Suspect]
     Active Substance: PALIVIZUMAB
     Indication: HEART DISEASE CONGENITAL
     Dosage: SEASON 1
     Route: 030
     Dates: start: 20191030, end: 20191030
  2. SYNAGIS [Suspect]
     Active Substance: PALIVIZUMAB
     Dosage: SEASON 1
     Route: 030
     Dates: start: 20191127

REACTIONS (1)
  - Respiratory syncytial virus bronchiolitis [Recovered/Resolved]

NARRATIVE: CASE EVENT DATE: 20191205
